FAERS Safety Report 4650846-X (Version None)
Quarter: 2005Q2

REPORT INFORMATION
  Report Type: 
  Country: None (occurrence: None)
  Receive Date: 20050503
  Receipt Date: 20050429
  Transmission Date: 20051028
  Serious: Yes (Death, Hospitalization)
  Sender: FDA-Public Use
  Company Number: DE-SANOFI-SYNTHELABO-F01200500661

PATIENT
  Sex: Male

DRUGS (9)
  1. OXALIPLATIN [Suspect]
     Indication: COLORECTAL CANCER METASTATIC
     Route: 042
     Dates: start: 20050307, end: 20050307
  2. CAPECITABINE [Suspect]
     Dosage: 2000 MG TWICE DAILY FOR 2 WEEKS, Q3W
     Route: 048
     Dates: start: 20050307, end: 20050307
  3. BEVACIZUMAB OR PLACEBO [Suspect]
     Route: 042
     Dates: start: 20050307, end: 20050307
  4. NAVOBAN [Concomitant]
     Dosage: UNK
     Route: 065
     Dates: start: 20050224
  5. DURAGESIC-100 [Concomitant]
     Dosage: UNK
     Route: 065
     Dates: start: 20050203, end: 20050319
  6. DIPYRONE TAB [Concomitant]
     Dosage: UNK
     Route: 065
     Dates: start: 20050215, end: 20050319
  7. SEVREDOL [Concomitant]
     Dosage: UNK
     Route: 065
     Dates: start: 20050215, end: 20050319
  8. MOVICOL [Concomitant]
     Dosage: UNK
     Route: 065
     Dates: start: 20050215, end: 20050319
  9. BELOC [Concomitant]
     Dosage: UNK
     Route: 065
     Dates: start: 20050319, end: 20050319

REACTIONS (2)
  - GENERAL PHYSICAL HEALTH DETERIORATION [None]
  - PULMONARY EMBOLISM [None]
